FAERS Safety Report 8136251 (Version 2)
Quarter: 2012Q4

REPORT INFORMATION
  Report Type: Report from Study
  Country: US (occurrence: US)
  Receive Date: 20110914
  Receipt Date: 20121030
  Transmission Date: 20130627
  Serious: No
  Sender: FDA-Public Use
  Company Number: US-JNJFOC-20110904541

PATIENT
  Age: 16 Year
  Sex: Female
  Weight: 47.9 kg

DRUGS (5)
  1. INFLIXIMAB, RECOMBINANT [Suspect]
     Indication: INFLAMMATORY BOWEL DISEASE
     Route: 042
     Dates: start: 20090129
  2. ANALPRAM HC [Concomitant]
  3. 5-ASA [Concomitant]
     Route: 048
  4. MIRALAX [Concomitant]
  5. VITAMIN D [Concomitant]

REACTIONS (1)
  - Psoriasis [Not Recovered/Not Resolved]
